FAERS Safety Report 6722357-9 (Version None)
Quarter: 2010Q2

REPORT INFORMATION
  Report Type: 
  Country: None (occurrence: None)
  Receive Date: 20100512
  Receipt Date: 20100505
  Transmission Date: 20101027
  Serious: Yes (Disabling, Other)
  Sender: FDA-Public Use
  Company Number: GB-BRISTOL-MYERS SQUIBB COMPANY-15092661

PATIENT
  Age: 70 Year
  Sex: Male

DRUGS (8)
  1. ACETYLSALICYLIC ACID [Suspect]
  2. CIPROFLOXACIN [Suspect]
     Route: 048
  3. WARFARIN SODIUM [Suspect]
     Indication: PULMONARY EMBOLISM
  4. CLOPIDOGREL BISULFATE [Suspect]
  5. ERYTHROMYCIN [Suspect]
     Indication: CELLULITIS
     Route: 048
  6. METRONIDAZOLE [Suspect]
     Dosage: 250MG 4 IN A DAY
     Route: 048
  7. MEROPENEM [Concomitant]
     Route: 042
  8. TEICOPLANIN [Concomitant]
     Route: 030

REACTIONS (5)
  - CELLULITIS [None]
  - DRUG INTERACTION [None]
  - EYE EXCISION [None]
  - HYPHAEMA [None]
  - INTERNATIONAL NORMALISED RATIO INCREASED [None]
